FAERS Safety Report 5794597-7 (Version None)
Quarter: 2008Q2

REPORT INFORMATION
  Report Type: 
  Country: None (occurrence: None)
  Receive Date: 20080627
  Receipt Date: 20080627
  Transmission Date: 20081010
  Serious: Yes (Hospitalization)
  Sender: FDA-Public Use
  Company Number: None

PATIENT
  Sex: Male
  Weight: 85.7298 kg

DRUGS (7)
  1. TARCEVA [Suspect]
     Indication: LUNG SQUAMOUS CELL CARCINOMA STAGE UNSPECIFIED
     Dosage: PO STARTED 3-4 WEEKS PRIOR TO ADMISSION
     Route: 048
  2. SYNTHROID [Concomitant]
  3. M.V.I. [Concomitant]
  4. CARDIZEM [Concomitant]
  5. ASPIRIN [Concomitant]
  6. CRESTOR [Concomitant]
  7. VIT B12 [Concomitant]

REACTIONS (2)
  - DYSPNOEA [None]
  - HYPOXIA [None]
